FAERS Safety Report 8986530 (Version 2)
Quarter: 2013Q1

REPORT INFORMATION
  Report Type: Report from Study
  Country: GB (occurrence: GB)
  Receive Date: 20121226
  Receipt Date: 20130122
  Transmission Date: 20140127
  Serious: Yes (Other)
  Sender: FDA-Public Use
  Company Number: GB-ROCHE-1169311

PATIENT
  Sex: Male
  Weight: 90 kg

DRUGS (2)
  1. RITUXIMAB [Suspect]
     Indication: RHEUMATOID ARTHRITIS
     Dosage: LAST DOSE PRIOR TO SAE 24 MAR 2011
     Route: 065
     Dates: start: 20100304
  2. METHOTREXATE [Concomitant]
     Route: 065
     Dates: start: 20100929

REACTIONS (1)
  - Malignant tumour excision [Recovered/Resolved]
